FAERS Safety Report 23887213 (Version 3)
Quarter: 2024Q3

REPORT INFORMATION
  Report Type: Report from Study
  Country: IL (occurrence: IL)
  Receive Date: 20240523
  Receipt Date: 20240913
  Transmission Date: 20241016
  Serious: Yes (Other)
  Sender: ROCHE
  Company Number: IL-ROCHE-3565446

PATIENT
  Age: 71 Year
  Sex: Female

DRUGS (1)
  1. OCREVUS [Suspect]
     Active Substance: OCRELIZUMAB
     Indication: Primary progressive multiple sclerosis
     Dosage: SHE RECEIVED HER LAST INFUSION OF OCRAVUS ON 31/MAR/2024
     Route: 042
     Dates: start: 20190109

REACTIONS (1)
  - Ovarian cancer metastatic [Unknown]

NARRATIVE: CASE EVENT DATE: 20240512
